FAERS Safety Report 11740586 (Version 2)
Quarter: 2015Q4

REPORT INFORMATION
  Report Type: Spontaneous
  Country: US (occurrence: US)
  Receive Date: 20151110
  Receipt Date: 20151120
  Transmission Date: 20160304
  Serious: No
  Sender: FDA-Public Use
  Company Number: US-ELI_LILLY_AND_COMPANY-US201207003673

PATIENT
  Age: 58 Year
  Sex: Female
  Weight: 63.6 kg

DRUGS (3)
  1. FORTEO [Suspect]
     Active Substance: TERIPARATIDE
     Indication: OSTEOPOROSIS
     Dosage: 20 UG, QD
     Dates: start: 20120523
  2. FORTEO [Suspect]
     Active Substance: TERIPARATIDE
     Dosage: 20 UG, QD
     Dates: end: 201209
  3. FORTEO [Suspect]
     Active Substance: TERIPARATIDE
     Dosage: 20 UG, QD

REACTIONS (16)
  - Fatigue [Unknown]
  - Weight decreased [Unknown]
  - Injection site pain [Unknown]
  - Injection site erythema [Unknown]
  - Injection site bruising [Unknown]
  - Flushing [Unknown]
  - Palpitations [Recovered/Resolved]
  - Nausea [Unknown]
  - Speech disorder [Recovered/Resolved]
  - Fungal infection [Unknown]
  - Oral candidiasis [Unknown]
  - Malaise [Unknown]
  - Night sweats [Unknown]
  - Injection site reaction [Unknown]
  - Spinal fracture [Unknown]
  - Injection site haemorrhage [Unknown]

NARRATIVE: CASE EVENT DATE: 201205
